FAERS Safety Report 6160753-1 (Version None)
Quarter: 2009Q2

REPORT INFORMATION
  Report Type: 
  Country: None (occurrence: None)
  Receive Date: 20090420
  Receipt Date: 20090413
  Transmission Date: 20091009
  Serious: Yes (Hospitalization)
  Sender: FDA-Public Use
  Company Number: US-ABBOTT-09P-163-0568032-00

PATIENT
  Sex: Female

DRUGS (17)
  1. NIASPAN [Suspect]
     Indication: DRUG USE FOR UNKNOWN INDICATION
     Dates: start: 20090325, end: 20090331
  2. NIASPAN [Suspect]
     Dates: start: 20090405
  3. ATENOLOL [Concomitant]
     Indication: DRUG USE FOR UNKNOWN INDICATION
  4. LEVOXYL [Concomitant]
     Indication: DRUG USE FOR UNKNOWN INDICATION
  5. TRAMADOL HCL [Concomitant]
     Indication: DRUG USE FOR UNKNOWN INDICATION
  6. PROVIGIL [Concomitant]
     Indication: DRUG USE FOR UNKNOWN INDICATION
  7. DIOVAN [Concomitant]
     Indication: DRUG USE FOR UNKNOWN INDICATION
  8. HYOSCYAMINE [Concomitant]
     Indication: DRUG USE FOR UNKNOWN INDICATION
  9. WELCHOL [Concomitant]
     Indication: DRUG USE FOR UNKNOWN INDICATION
  10. PROCARDIA [Concomitant]
     Indication: DRUG USE FOR UNKNOWN INDICATION
  11. MIRAPEX [Concomitant]
     Indication: DRUG USE FOR UNKNOWN INDICATION
  12. CYMBALTA [Concomitant]
     Indication: DRUG USE FOR UNKNOWN INDICATION
  13. ASPIRIN [Concomitant]
     Indication: DRUG USE FOR UNKNOWN INDICATION
  14. ZOLPIDEM TARTRATE [Concomitant]
     Indication: DRUG USE FOR UNKNOWN INDICATION
  15. IMITREX [Concomitant]
     Indication: DRUG USE FOR UNKNOWN INDICATION
  16. ISOMETH [Concomitant]
     Indication: DRUG USE FOR UNKNOWN INDICATION
     Dosage: 2 TABLETS EVERY FOUR HOURS AS NEEDED
  17. MORPHINE SULFATE [Concomitant]
     Indication: DRUG USE FOR UNKNOWN INDICATION
     Dosage: EVERY FOUR HOURS AS NEEDED

REACTIONS (3)
  - BLOOD PRESSURE ABNORMAL [None]
  - FLUSHING [None]
  - MIGRAINE [None]
